FAERS Safety Report 11419087 (Version 1)
Quarter: 2015Q3

REPORT INFORMATION
  Report Type: Spontaneous
  Country: CH (occurrence: CH)
  Receive Date: 20150826
  Receipt Date: 20150826
  Transmission Date: 20151125
  Serious: No
  Sender: FDA-Public Use
  Company Number: CH-ELI_LILLY_AND_COMPANY-CH201508006472

PATIENT
  Age: 17 Year
  Sex: Male

DRUGS (2)
  1. ZYPREXA [Suspect]
     Active Substance: OLANZAPINE
     Indication: PRODUCT USED FOR UNKNOWN INDICATION
     Route: 065
  2. ABILIFY [Suspect]
     Active Substance: ARIPIPRAZOLE
     Indication: PRODUCT USED FOR UNKNOWN INDICATION
     Route: 065

REACTIONS (3)
  - Panic attack [Unknown]
  - Off label use [Unknown]
  - Thrombocytopenia [Unknown]
